FAERS Safety Report 5748508-0 (Version None)
Quarter: 2008Q2

REPORT INFORMATION
  Report Type: 
  Country: None (occurrence: None)
  Receive Date: 20080521
  Receipt Date: 20080505
  Transmission Date: 20081010
  Serious: Yes (Other)
  Sender: FDA-Public Use
  Company Number: 2008002766

PATIENT
  Age: 15 Year
  Sex: Male
  Weight: 100.2449 kg

DRUGS (1)
  1. LUBRIDERM INTENSE REPAIR BODY LOTION (NO ACTIVE INGREDIENT) [Suspect]
     Indication: DRY SKIN
     Dosage: JUST ENOUGH TO COVER DRY AREAS ONCE., TOPICAL
     Route: 061
     Dates: start: 20080127, end: 20080127

REACTIONS (5)
  - DERMATITIS CONTACT [None]
  - ERYTHEMA OF EYELID [None]
  - EYELID OEDEMA [None]
  - HYPERSENSITIVITY [None]
  - RASH [None]
